FAERS Safety Report 8509880-1 (Version None)
Quarter: 2012Q3

REPORT INFORMATION
  Report Type: 
  Country: None (occurrence: None)
  Receive Date: 20120713
  Receipt Date: 20120705
  Transmission Date: 20120928
  Serious: Yes (Other)
  Sender: FDA-Public Use
  Company Number: US-JNJFOC-20120703020

PATIENT
  Sex: Male

DRUGS (1)
  1. DURAGESIC-100 [Suspect]
     Indication: BACK PAIN
     Route: 062

REACTIONS (6)
  - KNEE ARTHROPLASTY [None]
  - HYPERHIDROSIS [None]
  - ARTHRALGIA [None]
  - PRODUCT QUALITY ISSUE [None]
  - ANXIETY [None]
  - CARDIAC DISORDER [None]
